FAERS Safety Report 18333327 (Version 3)
Quarter: 2020Q4

REPORT INFORMATION
  Report Type: Spontaneous
  Country: US (occurrence: US)
  Receive Date: 20201001
  Receipt Date: 20201028
  Transmission Date: 20210113
  Serious: No
  Sender: FDA-Public Use
  Company Number: US-JNJFOC-20200938784

PATIENT
  Age: 66 Year
  Sex: Female
  Weight: 86.26 kg

DRUGS (1)
  1. ZYRTEC [Suspect]
     Active Substance: CETIRIZINE HYDROCHLORIDE
     Indication: MULTIPLE ALLERGIES
     Dosage: THERAPY START DATE: 2-3 YEARS AGO?LAST DATE ADMINISTERED: A COUPLE OF WEEKS AGO
     Route: 048

REACTIONS (3)
  - Somnolence [Recovered/Resolved]
  - Sluggishness [Recovered/Resolved]
  - Wrong technique in product usage process [Unknown]

NARRATIVE: CASE EVENT DATE: 201801
